APPROVED DRUG PRODUCT: ATAZANAVIR SULFATE
Active Ingredient: ATAZANAVIR SULFATE
Strength: EQ 300MG BASE
Dosage Form/Route: CAPSULE;ORAL
Application: A208177 | Product #003
Applicant: MYLAN PHARMACEUTICALS INC
Approved: Sep 24, 2018 | RLD: No | RS: No | Type: DISCN